FAERS Safety Report 9687245 (Version 1)
Quarter: 2013Q4

REPORT INFORMATION
  Report Type: Spontaneous
  Country: GB (occurrence: GB)
  Receive Date: 20131113
  Receipt Date: 20131113
  Transmission Date: 20140711
  Serious: Yes (Other)
  Sender: FDA-Public Use
  Company Number: GB-JNJFOC-20131107243

PATIENT
  Sex: 0

DRUGS (1)
  1. IBUPROFEN [Suspect]
     Indication: ANALGESIC THERAPY
     Route: 065

REACTIONS (10)
  - Otitis media [Unknown]
  - Sinusitis [Unknown]
  - Meningitis [Unknown]
  - Pneumonia [Unknown]
  - Peritonsillar abscess [Unknown]
  - Wheezing [Unknown]
  - Rash [Unknown]
  - Abdominal pain [Unknown]
  - Vomiting [Unknown]
  - Diarrhoea [Unknown]
